FAERS Safety Report 25840917 (Version 1)
Quarter: 2025Q3

REPORT INFORMATION
  Report Type: Spontaneous
  Country: US (occurrence: None)
  Receive Date: 20250924
  Receipt Date: 20250924
  Transmission Date: 20251021
  Serious: Yes (Hospitalization)
  Sender: FDA-CTU
  Company Number: None

PATIENT
  Age: 60 Year
  Sex: Female

DRUGS (2)
  1. GLEEVEC [Suspect]
     Active Substance: IMATINIB MESYLATE
     Dosage: FREQUENCY : DAILY;?
  2. TOPAMAX [Suspect]
     Active Substance: TOPIRAMATE

REACTIONS (6)
  - Rectal haemorrhage [None]
  - Depression [None]
  - Asthenia [None]
  - Pain [None]
  - Mast cell activation syndrome [None]
  - Anhedonia [None]
